FAERS Safety Report 13072769 (Version 1)
Quarter: 2016Q4

REPORT INFORMATION
  Report Type: Spontaneous
  Country: US (occurrence: US)
  Receive Date: 20161229
  Receipt Date: 20161229
  Transmission Date: 20170207
  Serious: Yes (Hospitalization)
  Sender: FDA-Public Use
  Company Number: US-SA-2016SA112008

PATIENT
  Age: 62 Year
  Sex: Male
  Weight: 102.3 kg

DRUGS (16)
  1. RIVOTRIL [Concomitant]
     Active Substance: CLONAZEPAM
     Route: 065
     Dates: start: 2011
  2. CHLORPHENAMINE MALEATE [Concomitant]
     Active Substance: CHLORPHENIRAMINE MALEATE
     Indication: COUGH
     Route: 065
     Dates: start: 20160219
  3. FEROBA [Concomitant]
     Active Substance: FERROUS SULFATE\PROTEASE
     Dates: start: 20160114
  4. AMMONIUM CHLORIDE. [Concomitant]
     Active Substance: AMMONIUM CHLORIDE
     Indication: COUGH
     Route: 065
     Dates: start: 20160219
  5. METHYLEPHEDRINE HYDROCHLORIDE [Concomitant]
     Active Substance: METHYLEPHEDRINE HYDROCHLORIDE
     Indication: COUGH
     Route: 065
     Dates: start: 20160219
  6. ZANAPAM [Concomitant]
     Route: 065
     Dates: start: 2011
  7. TRIPROLIDINE  HYDROCHLORIDE [Concomitant]
     Active Substance: TRIPROLIDINE HYDROCHLORIDE
     Route: 065
     Dates: start: 20160219
  8. PERPHENAZINE. [Concomitant]
     Active Substance: PERPHENAZINE
     Route: 065
     Dates: start: 2011
  9. PENIRAMIN [Concomitant]
     Route: 065
     Dates: start: 20160128
  10. TAXOTERE [Suspect]
     Active Substance: DOCETAXEL
     Indication: URETERIC CANCER
     Route: 065
     Dates: start: 20160128, end: 20160513
  11. DEXAMETHASONE. [Concomitant]
     Active Substance: DEXAMETHASONE
     Route: 065
     Dates: start: 20160128
  12. PSEUDOEPHEDRINE HYDROCHLORIDE. [Concomitant]
     Active Substance: PSEUDOEPHEDRINE HYDROCHLORIDE
     Route: 065
     Dates: start: 20160219
  13. NEBILET [Concomitant]
     Active Substance: NEBIVOLOL
     Route: 065
     Dates: start: 2011
  14. GUAIFENESIN. [Concomitant]
     Active Substance: GUAIFENESIN
     Indication: PRODUCTIVE COUGH
     Route: 065
     Dates: start: 20160219
  15. DEXTROMETHORPHAN HYDROBROMIDE. [Concomitant]
     Active Substance: DEXTROMETHORPHAN HYDROBROMIDE
     Indication: COUGH
     Route: 065
     Dates: start: 20160219
  16. TAGAMET [Concomitant]
     Active Substance: CIMETIDINE
     Route: 065
     Dates: start: 20160128

REACTIONS (1)
  - Dyspnoea [Recovered/Resolved]

NARRATIVE: CASE EVENT DATE: 20160428
